FAERS Safety Report 7314989-4 (Version None)
Quarter: 2011Q1

REPORT INFORMATION
  Report Type: 
  Country: None (occurrence: None)
  Receive Date: 20110225
  Receipt Date: 20100322
  Transmission Date: 20110831
  Serious: No
  Sender: FDA-Public Use
  Company Number: US-MYLANLABS-2010S1003351

PATIENT
  Age: 16 Year
  Sex: Female
  Weight: 49.9 kg

DRUGS (3)
  1. AMNESTEEM [Suspect]
     Indication: ACNE
     Route: 048
     Dates: start: 20091023, end: 20100215
  2. AMNESTEEM [Suspect]
     Indication: ACNE CYSTIC
     Route: 048
     Dates: start: 20091023, end: 20100215
  3. ORAL CONTRACEPTIVE NOS [Concomitant]

REACTIONS (1)
  - DEPRESSION [None]
